FAERS Safety Report 7669127-5 (Version None)
Quarter: 2011Q3

REPORT INFORMATION
  Report Type: 
  Country: None (occurrence: None)
  Receive Date: 20110808
  Receipt Date: 20110728
  Transmission Date: 20111222
  Serious: Yes (Hospitalization)
  Sender: FDA-Public Use
  Company Number: DE-JNJFOC-20090808334

PATIENT
  Age: 50 Year
  Sex: Female
  Weight: 70.1 kg

DRUGS (3)
  1. ALL OTHER THERAPEUTIC DRUGS [Concomitant]
  2. REMICADE [Suspect]
     Indication: CROHN'S DISEASE
     Route: 042
  3. AZATHIOPRINE [Suspect]
     Indication: CROHN'S DISEASE
     Dates: start: 20070721, end: 20090701

REACTIONS (1)
  - CYTOMEGALOVIRUS INFECTION [None]
